FAERS Safety Report 9838663 (Version 1)
Quarter: 2014Q1

REPORT INFORMATION
  Report Type: Spontaneous
  Country: BR (occurrence: None)
  Receive Date: 20140116
  Receipt Date: 20140116
  Transmission Date: 20141002
  Serious: Yes (Hospitalization)
  Sender: FDA-Public Use
  Company Number: DSU-2014-00061

PATIENT
  Age: 79 Year
  Sex: Female

DRUGS (2)
  1. OLMETEC HCT [Suspect]
     Indication: HYPERTENSION
     Route: 048
     Dates: start: 20091122
  2. LIPITOR (ATORVASTATIN CALCIUM) (TABLET) (ATORVASTATIN CALCIUM) [Suspect]
     Indication: BLOOD CHOLESTEROL INCREASED
     Route: 048
     Dates: start: 20110630

REACTIONS (1)
  - Gastrointestinal carcinoma [None]
